FAERS Safety Report 5776146-2 (Version None)
Quarter: 2008Q2

REPORT INFORMATION
  Report Type: 
  Country: None (occurrence: None)
  Receive Date: 20080613
  Receipt Date: 20080606
  Transmission Date: 20081010
  Serious: Yes (Life-Threatening, Hospitalization, Disabling)
  Sender: FDA-Public Use
  Company Number: 2008JP001253

PATIENT
  Age: 36 Year
  Sex: Female
  Weight: 61 kg

DRUGS (15)
  1. TACROLIMUS [Suspect]
     Indication: LUPUS NEPHRITIS
     Dosage: 1 MG, ORAL
     Route: 048
     Dates: start: 20070623, end: 20070824
  2. PREDNISOLONE [Concomitant]
  3. BUFFERIN [Concomitant]
  4. ALFAROL (ALFACALCIDOL) [Concomitant]
  5. RABEPRAZOLE SODIUM [Concomitant]
  6. LOXONIN (LOXOPROFEN SODIUM) [Concomitant]
  7. OPALMON (LIMAPROST) [Concomitant]
  8. CINAL (ASCORBIC ACID, CALCIUM PANTOTHENATE) [Concomitant]
  9. LOSARTAN POTASSIUM [Concomitant]
  10. LIPITOR [Concomitant]
  11. MAGLAX (MAGNESIUM OXIDE) [Concomitant]
  12. BONALON (ALENDRONIC ACID) [Concomitant]
  13. MOHRUS (KETOPROFEN) [Concomitant]
  14. SELBEX (TEPRENONE) [Concomitant]
  15. ISODINE (POVIDONE-IODINE) [Concomitant]

REACTIONS (8)
  - BLOOD CULTURE POSITIVE [None]
  - CELLULITIS [None]
  - CONVULSION [None]
  - ENTEROCOCCAL BACTERAEMIA [None]
  - HEPATIC ENCEPHALOPATHY [None]
  - HISTIOCYTOSIS HAEMATOPHAGIC [None]
  - LOSS OF CONSCIOUSNESS [None]
  - STAPHYLOCOCCAL BACTERAEMIA [None]
